FAERS Safety Report 7945717-7 (Version None)
Quarter: 2011Q4

REPORT INFORMATION
  Report Type: 
  Country: None (occurrence: None)
  Receive Date: 20111129
  Receipt Date: 20110826
  Transmission Date: 20120403
  Serious: No
  Sender: FDA-Public Use
  Company Number: US-MYLANLABS-2011S1017818

PATIENT
  Sex: Female

DRUGS (1)
  1. CLONAZEPAM [Suspect]
     Indication: ANXIETY
     Route: 048
     Dates: end: 20110701

REACTIONS (4)
  - SEDATION [None]
  - DRUG EFFECT INCREASED [None]
  - DYSARTHRIA [None]
  - FEELING ABNORMAL [None]
